FAERS Safety Report 9177096 (Version 1)
Quarter: 2013Q1

REPORT INFORMATION
  Report Type: Spontaneous
  Country: US (occurrence: None)
  Receive Date: 20130320
  Receipt Date: 20130320
  Transmission Date: 20140127
  Serious: Yes (Hospitalization)
  Sender: FDA-Public Use
  Company Number: None

PATIENT
  Age: 23 Year
  Sex: Female
  Weight: 54.43 kg

DRUGS (2)
  1. HYDROXYZINE PAMOATE [Suspect]
     Indication: ANXIETY
     Dates: start: 20130316, end: 20130316
  2. HYDROXYZINE PAMOATE [Suspect]
     Indication: SLEEP DISORDER
     Dates: start: 20130316, end: 20130316

REACTIONS (1)
  - Tremor [None]
